FAERS Safety Report 5867373-4 (Version None)
Quarter: 2008Q3

REPORT INFORMATION
  Report Type: 
  Country: None (occurrence: None)
  Receive Date: 20080902
  Receipt Date: 20080826
  Transmission Date: 20090109
  Serious: Yes (Life-Threatening, Hospitalization)
  Sender: FDA-Public Use
  Company Number: PHHO2008DE01552

PATIENT
  Sex: Female

DRUGS (8)
  1. PEGASYS COMP-PEG+ [Suspect]
     Indication: HEPATITIS C
     Dosage: 180 UG, QW
     Route: 058
     Dates: start: 20070803, end: 20080111
  2. RIBAVIRIN COMP-RIB+ [Suspect]
     Indication: HEPATITIS C
     Dosage: UNK, UNK
     Route: 048
     Dates: start: 20070803, end: 20080114
  3. BACLOFEN [Suspect]
  4. ZOLPIDEM [Suspect]
     Indication: SLEEP DISORDER
  5. ALCOHOL [Suspect]
  6. POTASSIUM CHLORIDE [Concomitant]
     Indication: HYPOKALAEMIA
  7. TIZANIDINE HCL [Concomitant]
     Indication: MUSCLE SPASTICITY
  8. IBUPROFEN TABLETS [Concomitant]
     Indication: HEADACHE

REACTIONS (2)
  - LOSS OF CONSCIOUSNESS [None]
  - SUICIDE ATTEMPT [None]
